FAERS Safety Report 8330966 (Version 2)
Quarter: 2013Q2

REPORT INFORMATION
  Report Type: Spontaneous
  Country: US (occurrence: US)
  Receive Date: 20120111
  Receipt Date: 20130424
  Transmission Date: 20140414
  Serious: Yes (Other)
  Sender: FDA-Public Use
  Company Number: US-GLAXOSMITHKLINE-A0960414A

PATIENT
  Age: 34 Year
  Sex: Female

DRUGS (14)
  1. LAMICTAL [Suspect]
     Indication: BIPOLAR II DISORDER
     Dosage: 300MG UNKNOWN
     Route: 048
     Dates: start: 2001
  2. LAMOTRIGINE [Suspect]
     Indication: BIPOLAR II DISORDER
     Dosage: 300MG UNKNOWN
     Route: 048
  3. MICROGESTIN [Suspect]
     Indication: CONTRACEPTION
     Route: 065
  4. GEODON [Suspect]
     Indication: PRODUCT USED FOR UNKNOWN INDICATION
     Route: 065
  5. WELLBUTRIN [Suspect]
     Indication: DEPRESSIVE SYMPTOM
     Route: 048
  6. EFFEXOR [Suspect]
     Indication: DEPRESSIVE SYMPTOM
     Route: 065
  7. LEXAPRO [Suspect]
     Indication: DEPRESSIVE SYMPTOM
     Route: 065
  8. CONTRACEPTIVE [Suspect]
     Indication: CONTRACEPTION
  9. LIPITOR [Concomitant]
     Route: 048
  10. TRILEPTAL [Concomitant]
  11. NORTRIPTYLINE [Concomitant]
  12. FOLPLEX [Concomitant]
  13. PRENATAL VITAMINS [Concomitant]
  14. FISH OIL [Concomitant]

REACTIONS (14)
  - Disability [Recovering/Resolving]
  - Abortion spontaneous [Unknown]
  - Prescribed overdose [Recovering/Resolving]
  - Depression [Recovering/Resolving]
  - Bedridden [Recovering/Resolving]
  - Hypersomnia [Recovering/Resolving]
  - Activities of daily living impaired [Recovering/Resolving]
  - Disturbance in attention [Recovering/Resolving]
  - Stress [Recovering/Resolving]
  - Exposure during pregnancy [Unknown]
  - Drug level decreased [Recovering/Resolving]
  - Depressed mood [Recovering/Resolving]
  - Mood altered [Unknown]
  - Drug interaction [Unknown]
